FAERS Safety Report 6108453-8 (Version None)
Quarter: 2009Q1

REPORT INFORMATION
  Report Type: 
  Country: None (occurrence: None)
  Receive Date: 20090309
  Receipt Date: 20090226
  Transmission Date: 20090719
  Serious: Yes (Other)
  Sender: FDA-Public Use
  Company Number: FR-B.I. PHARMACEUTICALS,INC./RIDGEFIELD-2009-FF-00022FF

PATIENT
  Sex: Female

DRUGS (1)
  1. MICARDIS [Suspect]
     Route: 048
     Dates: start: 20081001, end: 20081121

REACTIONS (4)
  - ABDOMINAL PAIN UPPER [None]
  - CYTOLYTIC HEPATITIS [None]
  - GAMMA-GLUTAMYLTRANSFERASE INCREASED [None]
  - PRURITUS [None]
